FAERS Safety Report 13608269 (Version 1)
Quarter: 2017Q2

REPORT INFORMATION
  Report Type: Spontaneous
  Country: US (occurrence: US)
  Receive Date: 20170602
  Receipt Date: 20170602
  Transmission Date: 20170830
  Serious: No
  Sender: FDA-Public Use
  Company Number: US-PERRIGO-16US017702

PATIENT
  Age: 66 Year
  Sex: Female
  Weight: 104.31 kg

DRUGS (3)
  1. PERMETHRIN. [Suspect]
     Active Substance: PERMETHRIN
     Dosage: 30 G, SINGLE
     Route: 061
     Dates: start: 201604, end: 201604
  2. PERMETHRIN. [Suspect]
     Active Substance: PERMETHRIN
     Indication: ACARODERMATITIS
     Dosage: 30 G, SINGLE
     Route: 061
     Dates: start: 201603, end: 201603
  3. PERMETHRIN. [Suspect]
     Active Substance: PERMETHRIN
     Dosage: 30 G, SINGLE
     Route: 061
     Dates: start: 20160628, end: 20160628

REACTIONS (1)
  - Drug ineffective [Unknown]

NARRATIVE: CASE EVENT DATE: 201603
